FAERS Safety Report 4466153-4 (Version None)
Quarter: 2004Q3

REPORT INFORMATION
  Report Type: 
  Country: None (occurrence: None)
  Receive Date: 20040930
  Receipt Date: 20040916
  Transmission Date: 20050211
  Serious: Yes (Hospitalization)
  Sender: FDA-Public Use
  Company Number: 2004231979JP

PATIENT
  Age: 1 Day
  Sex: Female
  Weight: 2.6 kg

DRUGS (4)
  1. ALPRAZOLAM [Suspect]
     Indication: PANIC DISORDER
     Dosage: ORAL
     Route: 048
     Dates: start: 19980101
  2. THIAMYLAL [Suspect]
     Indication: GENERAL ANAESTHESIA
     Dosage: 250 MG, SINGLE
     Dates: start: 20040901, end: 20040901
  3. SEVOFLURANE, 0.5-1.5% [Suspect]
     Indication: GENERAL ANAESTHESIA
     Dates: start: 20040901, end: 20040901
  4. TETRAMIDE [Concomitant]

REACTIONS (9)
  - ANAESTHETIC COMPLICATION [None]
  - CAESAREAN SECTION [None]
  - DRUG EXPOSURE DURING PREGNANCY [None]
  - HYPOTONIA NEONATAL [None]
  - NEONATAL DISORDER [None]
  - NEONATAL RESPIRATORY ACIDOSIS [None]
  - NEONATAL RESPIRATORY ARREST [None]
  - OLIGURIA [None]
  - RESPIRATORY DISORDER NEONATAL [None]
